FAERS Safety Report 15367950 (Version 3)
Quarter: 2018Q3

REPORT INFORMATION
  Report Type: Spontaneous
  Country: US (occurrence: US)
  Receive Date: 20180910
  Receipt Date: 20180925
  Transmission Date: 20181010
  Serious: No
  Sender: FDA-Public Use
  Company Number: US-SA-2018SA250991

PATIENT
  Age: 60 Year
  Sex: Female

DRUGS (29)
  1. ATORVASTATIN CALCIUM. [Concomitant]
     Active Substance: ATORVASTATIN CALCIUM
  2. VITAMIN D3 [Concomitant]
     Active Substance: CHOLECALCIFEROL
  3. TRINTELLIX [Concomitant]
     Active Substance: VORTIOXETINE HYDROBROMIDE
  4. CELEXA [CELECOXIB] [Concomitant]
  5. PLAVIX [Concomitant]
     Active Substance: CLOPIDOGREL BISULFATE
  6. SPIRIVA [Concomitant]
     Active Substance: TIOTROPIUM BROMIDE MONOHYDRATE
  7. VALACYCLOVIR [VALACICLOVIR] [Concomitant]
  8. BOTOX [Concomitant]
     Active Substance: ONABOTULINUMTOXINA
  9. XIIDRA [Concomitant]
     Active Substance: LIFITEGRAST
  10. LIDOCAINE. [Concomitant]
     Active Substance: LIDOCAINE
  11. POTASSIUM [Concomitant]
     Active Substance: POTASSIUM
  12. XANAX [Concomitant]
     Active Substance: ALPRAZOLAM
  13. FOSAMAX [Concomitant]
     Active Substance: ALENDRONATE SODIUM
  14. ASPIR 81 [Concomitant]
  15. VITAMIN A [RETINOL] [Concomitant]
  16. TEGRETOL [Concomitant]
     Active Substance: CARBAMAZEPINE
  17. IMITREX [SUMATRIPTAN] [Concomitant]
  18. NATURE?THROID [Concomitant]
     Active Substance: THYROID, PORCINE
  19. AUBAGIO [Suspect]
     Active Substance: TERIFLUNOMIDE
     Indication: MULTIPLE SCLEROSIS
     Dosage: 14 UNK
     Route: 048
     Dates: start: 20160108
  20. COREG [Concomitant]
     Active Substance: CARVEDILOL
  21. LOTEMAX [Concomitant]
     Active Substance: LOTEPREDNOL ETABONATE
  22. RESTASIS [Concomitant]
     Active Substance: CYCLOSPORINE
  23. AUBAGIO [Suspect]
     Active Substance: TERIFLUNOMIDE
     Dosage: 14 MG, QD
     Route: 048
     Dates: start: 20180622
  24. MAXALT [Concomitant]
     Active Substance: RIZATRIPTAN BENZOATE
  25. OXYBUTYNIN CHLORIDE. [Concomitant]
     Active Substance: OXYBUTYNIN CHLORIDE
  26. VIBERZI [Concomitant]
     Active Substance: ELUXADOLINE
  27. PROAIR [SALBUTAMOL SULFATE] [Concomitant]
  28. PANTOPRAZOLE SODIUM. [Concomitant]
     Active Substance: PANTOPRAZOLE SODIUM
  29. DEXAMETHASONE. [Concomitant]
     Active Substance: DEXAMETHASONE

REACTIONS (2)
  - Fatigue [Unknown]
  - Eye operation [Unknown]

NARRATIVE: CASE EVENT DATE: 20180904
